FAERS Safety Report 15732632 (Version 2)
Quarter: 2019Q1

REPORT INFORMATION
  Report Type: Spontaneous
  Country: US (occurrence: US)
  Receive Date: 20181217
  Receipt Date: 20190109
  Transmission Date: 20190417
  Serious: No
  Sender: FDA-Public Use
  Company Number: US-ASTRAZENECA-2018SF54252

PATIENT
  Sex: Female
  Weight: 113.4 kg

DRUGS (3)
  1. INSULIN GLARGINE [Concomitant]
     Active Substance: INSULIN GLARGINE
     Indication: DIABETES MELLITUS
     Dosage: 38 UNITS TWICE A DAY
     Route: 058
  2. BYDUREON [Suspect]
     Active Substance: EXENATIDE
     Indication: TYPE 2 DIABETES MELLITUS
     Route: 058
  3. METFORMIN [Concomitant]
     Active Substance: METFORMIN HYDROCHLORIDE
     Indication: DIABETES MELLITUS
     Route: 058

REACTIONS (6)
  - Intentional product use issue [Unknown]
  - Hiatus hernia [Unknown]
  - Memory impairment [Not Recovered/Not Resolved]
  - Oesophageal ulcer [Unknown]
  - Dyspepsia [Recovering/Resolving]
  - Device leakage [Unknown]
